FAERS Safety Report 13531287 (Version 2)
Quarter: 2017Q2

REPORT INFORMATION
  Report Type: Spontaneous
  Country: US (occurrence: US)
  Receive Date: 20170510
  Receipt Date: 20170518
  Transmission Date: 20170830
  Serious: No
  Sender: FDA-Public Use
  Company Number: US-PFIZER INC-2017009553

PATIENT
  Age: 60 Year
  Sex: Male

DRUGS (2)
  1. SUTENT [Suspect]
     Active Substance: SUNITINIB MALATE
     Indication: GASTROINTESTINAL STROMAL TUMOUR
     Dosage: 50 MG, DAILY
     Route: 048
  2. SUTENT [Suspect]
     Active Substance: SUNITINIB MALATE
     Dosage: 50 MG, CYCLIC(DAILY FOR 28 DAYS ON/14 DAYS OFF)

REACTIONS (5)
  - Rash [Unknown]
  - Genital burning sensation [Unknown]
  - Loss of personal independence in daily activities [Unknown]
  - Oral discomfort [Unknown]
  - Erythema [Unknown]
